FAERS Safety Report 10188823 (Version 1)
Quarter: 2014Q2

REPORT INFORMATION
  Report Type: Spontaneous
  Country: US (occurrence: None)
  Receive Date: 20140521
  Receipt Date: 20140521
  Transmission Date: 20141212
  Serious: Yes (Disabling, Other)
  Sender: FDA-Public Use
  Company Number: None

PATIENT
  Age: 43 Year
  Sex: Female
  Weight: 77.11 kg

DRUGS (1)
  1. TRAMADOL [Suspect]
     Indication: PAIN
     Dosage: 2 PILLS EVERY 4-6 HOURS TWICE DAILY TAKEN BY MOUTH.
     Route: 048
     Dates: start: 20140221, end: 20140430

REACTIONS (8)
  - Drug withdrawal syndrome [None]
  - Insomnia [None]
  - Restlessness [None]
  - Muscle twitching [None]
  - Anxiety [None]
  - Agitation [None]
  - Hypertension [None]
  - Abdominal pain [None]
